FAERS Safety Report 17359867 (Version 1)
Quarter: 2020Q1

REPORT INFORMATION
  Report Type: Spontaneous
  Country: TR (occurrence: TR)
  Receive Date: 20200203
  Receipt Date: 20200203
  Transmission Date: 20200409
  Serious: Yes (Hospitalization)
  Sender: FDA-Public Use
  Company Number: TR-TEVA-2020-TR-1178786

PATIENT
  Age: 77 Year
  Sex: Male

DRUGS (9)
  1. WARFARIN [Interacting]
     Active Substance: WARFARIN
     Indication: CHRONIC OBSTRUCTIVE PULMONARY DISEASE
  2. WARFARIN [Interacting]
     Active Substance: WARFARIN
     Indication: CORONARY ARTERY DISEASE
     Route: 065
  3. CORASPIN [Suspect]
     Active Substance: ASPIRIN
     Indication: HYPERTENSION
  4. WARFARIN [Interacting]
     Active Substance: WARFARIN
     Indication: ARRHYTHMIA
  5. CLARITHROMYCIN. [Suspect]
     Active Substance: CLARITHROMYCIN
     Indication: PNEUMONIA
     Dosage: 1000 MILLIGRAM DAILY;
     Route: 065
  6. CORASPIN [Suspect]
     Active Substance: ASPIRIN
     Indication: ARRHYTHMIA
  7. WARFARIN [Interacting]
     Active Substance: WARFARIN
     Indication: HYPERTENSION
  8. CORASPIN [Suspect]
     Active Substance: ASPIRIN
     Indication: CHRONIC OBSTRUCTIVE PULMONARY DISEASE
  9. CORASPIN [Suspect]
     Active Substance: ASPIRIN
     Indication: CORONARY ARTERY DISEASE
     Route: 065

REACTIONS (6)
  - Contusion [Recovered/Resolved]
  - Urinary bladder rupture [Recovered/Resolved]
  - Haematoma [Recovered/Resolved]
  - Urinary bladder haemorrhage [Recovered/Resolved]
  - Overdose [Recovered/Resolved]
  - Drug interaction [Recovered/Resolved]
